FAERS Safety Report 8312565-8 (Version None)
Quarter: 2012Q2

REPORT INFORMATION
  Report Type: 
  Country: None (occurrence: None)
  Receive Date: 20120425
  Receipt Date: 20120425
  Transmission Date: 20120825
  Serious: Yes (Other)
  Sender: FDA-Public Use
  Company Number: None

PATIENT
  Age: 48 Year
  Sex: Female
  Weight: 64.4108 kg

DRUGS (1)
  1. CYANOCOBALAMIN [Suspect]
     Dosage: 1 ML EACH WEEK WEEKLY IM 1 EVERY DAY FOR 7 DAY 1 1 A WEEK AFTER 12 WEEKS
     Route: 030

REACTIONS (8)
  - GASTRIC DISORDER [None]
  - DYSPNOEA [None]
  - OEDEMA PERIPHERAL [None]
  - DIARRHOEA [None]
  - RENAL DISORDER [None]
  - PAIN [None]
  - CHEST DISCOMFORT [None]
  - FEELING ABNORMAL [None]
